FAERS Safety Report 8005662-8 (Version None)
Quarter: 2011Q4

REPORT INFORMATION
  Report Type: 
  Country: None (occurrence: None)
  Receive Date: 20111223
  Receipt Date: 20111213
  Transmission Date: 20120403
  Serious: No
  Sender: FDA-Public Use
  Company Number: US-JNJFOC-20111206622

PATIENT
  Sex: Female
  Weight: 102.06 kg

DRUGS (15)
  1. METHOTREXATE [Concomitant]
     Indication: SYSTEMIC LUPUS ERYTHEMATOSUS
     Route: 048
     Dates: start: 20040101
  2. SPIRONOLACTONE [Concomitant]
     Indication: SWELLING
     Route: 048
     Dates: start: 20040101
  3. DURAGESIC-100 [Suspect]
     Indication: BACK PAIN
     Route: 062
  4. LEXAPRO [Concomitant]
     Indication: DEPRESSION
     Route: 048
     Dates: start: 20040101
  5. METHOTREXATE [Concomitant]
     Indication: RHEUMATOID ARTHRITIS
     Route: 048
     Dates: start: 20040101
  6. ASPIRIN [Concomitant]
     Indication: BLOOD CHOLESTEROL
     Route: 048
  7. HYDROXYCHLOROQUINE [Concomitant]
     Indication: RHEUMATOID ARTHRITIS
     Route: 048
  8. NEURONTIN [Concomitant]
     Indication: PAIN
     Dates: start: 20040101
  9. CYMBALTA [Concomitant]
     Indication: DEPRESSION
     Route: 048
  10. DURAGESIC-100 [Suspect]
     Route: 062
     Dates: start: 20040101
  11. SULFAZINE [Concomitant]
     Indication: SYSTEMIC LUPUS ERYTHEMATOSUS
  12. SULFAZINE [Concomitant]
     Indication: RHEUMATOID ARTHRITIS
  13. SIMPONI [Suspect]
     Indication: RHEUMATOID ARTHRITIS
     Route: 058
     Dates: start: 20100801
  14. FENTANYL [Suspect]
     Indication: BACK PAIN
     Route: 062
  15. NASAL SPRAY NOS [Concomitant]
     Indication: MULTIPLE ALLERGIES
     Route: 055

REACTIONS (11)
  - PRODUCT FORMULATION ISSUE [None]
  - INSOMNIA [None]
  - WRONG TECHNIQUE IN DRUG USAGE PROCESS [None]
  - OEDEMA PERIPHERAL [None]
  - MALAISE [None]
  - PRODUCT QUALITY ISSUE [None]
  - PAIN [None]
  - DRUG DOSE OMISSION [None]
  - INAPPROPRIATE SCHEDULE OF DRUG ADMINISTRATION [None]
  - VOMITING [None]
  - RASH [None]
